FAERS Safety Report 23237093 (Version 1)
Quarter: 2023Q4

REPORT INFORMATION
  Report Type: Spontaneous
  Country: US (occurrence: None)
  Receive Date: 20231128
  Receipt Date: 20231128
  Transmission Date: 20240110
  Serious: No
  Sender: FDA-Public Use
  Company Number: None

PATIENT
  Age: 37 Year
  Sex: Female

DRUGS (2)
  1. OTEZLA [Suspect]
     Active Substance: APREMILAST
     Indication: Psoriatic arthropathy
     Dosage: FREQUENCY : TWICE A DAY;?
     Route: 048
     Dates: start: 202310
  2. OTEZLA [Suspect]
     Active Substance: APREMILAST
     Indication: Psoriasis

REACTIONS (8)
  - Abdominal pain upper [None]
  - Rectal haemorrhage [None]
  - Nausea [None]
  - Headache [None]
  - Diarrhoea [None]
  - Malaise [None]
  - Intentional dose omission [None]
  - Swelling face [None]
